FAERS Safety Report 20955602 (Version 1)
Quarter: 2022Q2

REPORT INFORMATION
  Report Type: Spontaneous
  Country: US (occurrence: None)
  Receive Date: 20220613
  Receipt Date: 20220613
  Transmission Date: 20220721
  Serious: Yes (Disabling, Other)
  Sender: FDA-Public Use
  Company Number: None

PATIENT
  Age: 65 Year
  Sex: Female
  Weight: 88.0 kg

DRUGS (1)
  1. CHLORTHALIDONE [Suspect]
     Active Substance: CHLORTHALIDONE
     Indication: Hypertension
     Dosage: FREQUENCY : DAILY;?
     Route: 048
     Dates: start: 20170110, end: 20220531

REACTIONS (6)
  - Dizziness [None]
  - Asthenia [None]
  - Vertigo [None]
  - Electrolyte imbalance [None]
  - Blood potassium decreased [None]
  - Therapy interrupted [None]

NARRATIVE: CASE EVENT DATE: 20220315
